FAERS Safety Report 10409818 (Version 2)
Quarter: 2014Q3

REPORT INFORMATION
  Report Type: Spontaneous
  Country: US (occurrence: US)
  Receive Date: 20140826
  Receipt Date: 20140904
  Transmission Date: 20150326
  Serious: Yes (Hospitalization)
  Sender: FDA-Public Use
  Company Number: US-009507513-1408USA012016

PATIENT
  Age: 21 Year
  Sex: Female
  Weight: 53.97 kg

DRUGS (1)
  1. IMPLANON [Suspect]
     Active Substance: ETONOGESTREL
     Indication: CONTRACEPTION
     Dosage: 3 YEAR IMPLANT
     Route: 059
     Dates: start: 20110722

REACTIONS (9)
  - Migraine [Unknown]
  - Abdominal discomfort [Unknown]
  - Nausea [Unknown]
  - Menstruation normal [Unknown]
  - Hypoaesthesia oral [Unknown]
  - Hypomenorrhoea [Unknown]
  - Food craving [Unknown]
  - Amenorrhoea [Unknown]
  - Incorrect drug administration duration [Unknown]

NARRATIVE: CASE EVENT DATE: 201109
